FAERS Safety Report 7921866-4 (Version None)
Quarter: 2011Q4

REPORT INFORMATION
  Report Type: 
  Country: None (occurrence: None)
  Receive Date: 20111117
  Receipt Date: 20111108
  Transmission Date: 20120403
  Serious: Yes (Hospitalization, Disabling, Other)
  Sender: FDA-Public Use
  Company Number: FR-BAYER-2011-025252

PATIENT
  Age: 58 Year
  Sex: Male

DRUGS (4)
  1. CIPROFLOXACIN [Suspect]
     Dosage: DOSE AS USED: 1DF
     Route: 042
     Dates: start: 20110222, end: 20110223
  2. ROCEPHIN [Suspect]
     Dosage: 1 DF, UNK
     Route: 042
     Dates: start: 20110222
  3. OFLOXACIN [Suspect]
     Indication: COLON CANCER METASTATIC
     Dosage: 1 DF, UNK
     Route: 042
     Dates: start: 20110224
  4. AVASTIN [Suspect]
     Dosage: 21.33 MG, UNK
     Route: 042
     Dates: start: 20101022, end: 20110216

REACTIONS (5)
  - ARTERIAL THROMBOSIS LIMB [None]
  - PERIPHERAL ISCHAEMIA [None]
  - PERIPHERAL COLDNESS [None]
  - SKIN DISCOLOURATION [None]
  - LEG AMPUTATION [None]
